FAERS Safety Report 5523948-3 (Version None)
Quarter: 2007Q4

REPORT INFORMATION
  Report Type: 
  Country: None (occurrence: None)
  Receive Date: 20071121
  Receipt Date: 20071112
  Transmission Date: 20080405
  Serious: Yes (Hospitalization, Other)
  Sender: FDA-Public Use
  Company Number: US-GILEAD-2007-0014337

PATIENT
  Age: 51 Year
  Sex: Female

DRUGS (7)
  1. LETAIRIS [Suspect]
     Indication: PULMONARY HYPERTENSION
     Route: 065
     Dates: start: 20071011
  2. REVATIO [Concomitant]
     Indication: PULMONARY HYPERTENSION
     Route: 048
  3. AUGMENTIN [Concomitant]
     Indication: BRONCHITIS
     Route: 048
     Dates: end: 20071023
  4. LASIX [Concomitant]
     Route: 048
  5. SPIRONOLACTONE [Concomitant]
     Route: 048
  6. PREDNISONE TAB [Concomitant]
     Indication: DYSPNOEA
     Route: 065
  7. OXYGEN [Concomitant]
     Indication: DYSPNOEA
     Route: 010

REACTIONS (8)
  - ALANINE AMINOTRANSFERASE INCREASED [None]
  - ASPARTATE AMINOTRANSFERASE INCREASED [None]
  - BLISTER [None]
  - LEUKOCYTOCLASTIC VASCULITIS [None]
  - LIVER FUNCTION TEST ABNORMAL [None]
  - OEDEMA PERIPHERAL [None]
  - PNEUMONIA [None]
  - PSEUDOMONAS INFECTION [None]
